FAERS Safety Report 13500704 (Version 2)
Quarter: 2017Q2

REPORT INFORMATION
  Report Type: Report from Study
  Country: NL (occurrence: NL)
  Receive Date: 20170501
  Receipt Date: 20170523
  Transmission Date: 20170830
  Serious: Yes (Death)
  Sender: FDA-Public Use
  Company Number: NL-ACTELION-A-US2017-153220

PATIENT
  Age: 72 Year
  Sex: Female

DRUGS (9)
  1. BUMETANIDE. [Concomitant]
     Active Substance: BUMETANIDE
  2. SPIRONOLACTONE. [Concomitant]
     Active Substance: SPIRONOLACTONE
  3. AMBRISENTAN [Concomitant]
     Active Substance: AMBRISENTAN
  4. TADALAFIL [Concomitant]
     Active Substance: TADALAFIL
  5. FERROUS FUMARATE [Concomitant]
     Active Substance: FERROUS FUMARATE
  6. SIMVASTATINE [Concomitant]
     Active Substance: SIMVASTATIN
  7. VENTAVIS [Suspect]
     Active Substance: ILOPROST
     Indication: PULMONARY ARTERIAL HYPERTENSION
     Dosage: 5 MCG, 7 X
     Route: 055
     Dates: start: 20140526
  8. OXAZEPAM. [Concomitant]
     Active Substance: OXAZEPAM
  9. PANTOPRAZOLE [Concomitant]
     Active Substance: PANTOPRAZOLE

REACTIONS (2)
  - Pulmonary arterial hypertension [Fatal]
  - Systemic scleroderma [Fatal]
